FAERS Safety Report 8184026 (Version 2)
Quarter: 2015Q2

REPORT INFORMATION
  Report Type: Spontaneous
  Country: US (occurrence: US)
  Receive Date: 20111017
  Receipt Date: 20150618
  Transmission Date: 20150821
  Serious: No
  Sender: FDA-Public Use
  Company Number: US-PFIZER INC-2011244876

PATIENT
  Age: 73 Year
  Sex: Female

DRUGS (2)
  1. QUINAPRIL [Suspect]
     Active Substance: QUINAPRIL\QUINAPRIL HYDROCHLORIDE
     Dosage: UNK
  2. CORGARD [Suspect]
     Active Substance: NADOLOL
     Dosage: UNK
     Route: 048

REACTIONS (1)
  - Drug ineffective [Unknown]
